FAERS Safety Report 5843700-9 (Version None)
Quarter: 2008Q3

REPORT INFORMATION
  Report Type: 
  Country: None (occurrence: None)
  Receive Date: 20080813
  Receipt Date: 20080428
  Transmission Date: 20090109
  Serious: No
  Sender: FDA-Public Use
  Company Number: US-BRISTOL-MYERS SQUIBB COMPANY-14062863

PATIENT
  Age: 46 Year
  Sex: Female

DRUGS (12)
  1. IXEMPRA KIT [Suspect]
     Indication: BREAST CANCER METASTATIC
     Dosage: SECOND DOSE ON - 05FEB08
     Route: 042
     Dates: start: 20080115
  2. LEXAPRO [Concomitant]
  3. PEPCID [Concomitant]
  4. NEXIUM [Concomitant]
  5. DIOVAN HCT [Concomitant]
  6. TOPROL-XL [Concomitant]
  7. VYTORIN [Concomitant]
  8. ATIVAN [Concomitant]
  9. AMBIEN [Concomitant]
  10. CALCIUM + VITAMIN D [Concomitant]
  11. M.V.I. [Concomitant]
  12. POTASSIUM CHLORIDE [Concomitant]

REACTIONS (3)
  - DYSPNOEA [None]
  - HYPOTENSION [None]
  - TACHYCARDIA [None]
